FAERS Safety Report 9836681 (Version 1)
Quarter: 2013Q4

REPORT INFORMATION
  Report Type: Spontaneous
  Country: US (occurrence: None)
  Receive Date: 20131121
  Receipt Date: 20131121
  Transmission Date: 20140711
  Serious: Yes (Other)
  Sender: FDA-Public Use
  Company Number: 1000047751

PATIENT
  Age: 87 Year
  Sex: Female
  Weight: 78.4 kg

DRUGS (10)
  1. TUDORZA PRESSAIR [Suspect]
     Indication: CHRONIC OBSTRUCTIVE PULMONARY DISEASE
     Dosage: 800 MCG (400 MCG, 2 IN 1 D), RESPIRATORY (INHALATION)
     Route: 055
     Dates: start: 201306
  2. ADVAIR (FLUTICASONE, SALMETEROL) (FLUTICASONE, SALMETEROL) [Concomitant]
  3. CALCIUM (CALCIUM) (CALCIUM) [Concomitant]
  4. ALPRAZOLAM (ALPRAZOLAM) (ALPRAZOLAM) [Concomitant]
  5. KLOR CON (POTASSIUM CHLORIDE) (POTASSIUM CHLORIDE) [Concomitant]
  6. FERROUS SULFATE (FERROUS SULFATE) (FERROUS SULFATE) [Concomitant]
  7. COLACE [Concomitant]
  8. VITAMIN D (VITAMIN D) (VITAMIN D) [Concomitant]
  9. LASIX (FUROSEMIDE) (FUROSEMIDE) [Concomitant]
  10. LOSARTAN (LOSARTAN) (LOSARTAN) [Concomitant]

REACTIONS (1)
  - Weight increased [None]
